FAERS Safety Report 9855561 (Version 1)
Quarter: 2014Q1

REPORT INFORMATION
  Report Type: Spontaneous
  Country: GB (occurrence: GB)
  Receive Date: 20140130
  Receipt Date: 20140130
  Transmission Date: 20141002
  Serious: Yes (Hospitalization, Other)
  Sender: FDA-Public Use
  Company Number: GB-AMGEN-GBRSP2014005741

PATIENT
  Age: 45 Year
  Sex: Female
  Weight: 74 kg

DRUGS (2)
  1. PROLIA [Suspect]
     Indication: OSTEOPOROSIS POSTMENOPAUSAL
     Dosage: 60 MG, UNK
     Route: 058
     Dates: start: 20130626, end: 20131218
  2. PREDNISOLONE [Concomitant]
     Route: 065

REACTIONS (4)
  - Lung abscess [Unknown]
  - Staphylococcal sepsis [Not Recovered/Not Resolved]
  - Renal impairment [Unknown]
  - Rash [Unknown]
